FAERS Safety Report 15265573 (Version 1)
Quarter: 2018Q3

REPORT INFORMATION
  Report Type: Spontaneous
  Country: US (occurrence: US)
  Receive Date: 20180723
  Receipt Date: 20180723
  Transmission Date: 20181010
  Serious: No
  Sender: FDA-Public Use
  Company Number: None

PATIENT
  Age: 40 Year
  Sex: Female

DRUGS (1)
  1. COSENTYX [Suspect]
     Active Substance: SECUKINUMAB

REACTIONS (5)
  - Chest injury [None]
  - Fall [None]
  - Family stress [None]
  - Drug effect decreased [None]
  - Atypical pneumonia [None]

NARRATIVE: CASE EVENT DATE: 20180707
